FAERS Safety Report 6791313-7 (Version None)
Quarter: 2010Q2

REPORT INFORMATION
  Report Type: 
  Country: None (occurrence: None)
  Receive Date: 20100624
  Receipt Date: 20100614
  Transmission Date: 20101027
  Serious: Yes (Hospitalization, Other)
  Sender: FDA-Public Use
  Company Number: US-ROCHE-710294

PATIENT
  Sex: Male
  Weight: 112.5 kg

DRUGS (7)
  1. AVASTIN [Suspect]
     Dosage: DOSE: 1681 MG
     Route: 042
     Dates: start: 20100111
  2. AMARYL [Concomitant]
     Dates: start: 20100122, end: 20100124
  3. AVANDIA [Concomitant]
  4. COREG [Concomitant]
  5. LOTREL [Concomitant]
     Dosage: DOSE REPORTED: 5/20 MG
  6. PROTONIX [Concomitant]
  7. PERCOCET [Concomitant]

REACTIONS (8)
  - ANAEMIA [None]
  - ASTHENIA [None]
  - DIZZINESS [None]
  - EPISTAXIS [None]
  - FATIGUE [None]
  - HYPOGLYCAEMIA [None]
  - ILL-DEFINED DISORDER [None]
  - PLATELET COUNT DECREASED [None]
